FAERS Safety Report 24525365 (Version 1)
Quarter: 2024Q4

REPORT INFORMATION
  Report Type: Spontaneous
  Country: CH (occurrence: CH)
  Receive Date: 20241019
  Receipt Date: 20241019
  Transmission Date: 20250115
  Serious: Yes (Hospitalization)
  Sender: NOVITIUM PHARMA
  Company Number: CH-NOVITIUMPHARMA-2024CHNVP02281

PATIENT
  Age: 31 Year
  Sex: Female

DRUGS (9)
  1. LACOSAMIDE [Suspect]
     Active Substance: LACOSAMIDE
     Indication: Status epilepticus
  2. BRIVARACETAM [Concomitant]
     Active Substance: BRIVARACETAM
     Indication: Status epilepticus
  3. CLONAZEPAM [Concomitant]
     Active Substance: CLONAZEPAM
     Indication: Status epilepticus
  4. KETAMINE [Concomitant]
     Active Substance: KETAMINE
     Indication: Status epilepticus
  5. PERAMPANEL [Concomitant]
     Active Substance: PERAMPANEL
     Indication: Status epilepticus
  6. PHENOBARBITAL [Concomitant]
     Active Substance: PHENOBARBITAL
     Indication: Status epilepticus
  7. PROPOFOL [Concomitant]
     Active Substance: PROPOFOL
     Indication: Status epilepticus
  8. Thiopental-sodium [Concomitant]
     Indication: Status epilepticus
  9. SEVOFLURANE [Concomitant]
     Active Substance: SEVOFLURANE
     Indication: Status epilepticus

REACTIONS (1)
  - Rebound effect [Recovering/Resolving]
